FAERS Safety Report 6983784-8 (Version None)
Quarter: 2010Q3

REPORT INFORMATION
  Report Type: 
  Country: None (occurrence: None)
  Receive Date: 20100914
  Receipt Date: 20051220
  Transmission Date: 20110219
  Serious: Yes (Death)
  Sender: FDA-Public Use
  Company Number: US-WYE-H07164708

PATIENT
  Age: 74 Year

DRUGS (2)
  1. ADVIL LIQUI-GELS [Suspect]
     Indication: BACK PAIN
     Dosage: UNKNOWN DOSE AS NEEDED
     Route: 048
  2. COUMADIN [Suspect]
     Indication: PHLEBITIS
     Route: 048

REACTIONS (5)
  - CONTUSION [None]
  - HYPOTENSION [None]
  - INTRA-ABDOMINAL HAEMATOMA [None]
  - RECTAL HAEMORRHAGE [None]
  - TACHYCARDIA [None]
